FAERS Safety Report 5985040-3 (Version None)
Quarter: 2008Q4

REPORT INFORMATION
  Report Type: 
  Country: None (occurrence: None)
  Receive Date: 20081208
  Receipt Date: 20080616
  Transmission Date: 20090506
  Serious: Yes (Hospitalization)
  Sender: FDA-Public Use
  Company Number: US-AMGEN-QUU287430

PATIENT
  Sex: Female

DRUGS (1)
  1. ENBREL [Suspect]
     Indication: RHEUMATOID ARTHRITIS
     Route: 058

REACTIONS (7)
  - ANGINA PECTORIS [None]
  - CATARACT [None]
  - DIZZINESS [None]
  - INCREASED TENDENCY TO BRUISE [None]
  - INJECTION SITE HAEMATOMA [None]
  - RHEUMATOID ARTHRITIS [None]
  - THROMBOSIS [None]
